FAERS Safety Report 21191481 (Version 2)
Quarter: 2022Q3

REPORT INFORMATION
  Report Type: Spontaneous
  Country: US (occurrence: US)
  Receive Date: 20220809
  Receipt Date: 20220824
  Transmission Date: 20221027
  Serious: No
  Sender: FDA-Public Use
  Company Number: US-LUPIN PHARMACEUTICALS INC.-2022-10115

PATIENT
  Age: 70 Year
  Sex: Female

DRUGS (4)
  1. GABAPENTIN [Suspect]
     Active Substance: GABAPENTIN
     Indication: Coccydynia
     Dosage: 300 MG, QID
     Route: 065
  2. MEXILETINE [Suspect]
     Active Substance: MEXILETINE
     Indication: Coccydynia
     Dosage: 150 MG, TID
     Route: 065
  3. LIDOCAINE [Concomitant]
     Active Substance: LIDOCAINE
     Indication: Coccydynia
     Dosage: UNK
     Route: 042
     Dates: start: 2011
  4. LIDOCAINE [Concomitant]
     Active Substance: LIDOCAINE
     Indication: Bone pain

REACTIONS (2)
  - Somnolence [Unknown]
  - Weight increased [Unknown]
